FAERS Safety Report 20299375 (Version 6)
Quarter: 2023Q4

REPORT INFORMATION
  Report Type: Spontaneous
  Country: US (occurrence: US)
  Receive Date: 20220105
  Receipt Date: 20231120
  Transmission Date: 20240109
  Serious: No
  Sender: FDA-Public Use
  Company Number: US-PFIZER INC-2021555624

PATIENT
  Age: 78 Year
  Sex: Female

DRUGS (2)
  1. IBRANCE [Suspect]
     Active Substance: PALBOCICLIB
     Indication: Breast cancer female
     Dosage: 125 MG
     Dates: start: 2018
  2. IBRANCE [Suspect]
     Active Substance: PALBOCICLIB
     Dosage: TAKE ONE (1) TABLET BY MOUTH ONCE DAILY 21 DAYS ON, THEN 7 DAYS OFF
     Route: 048

REACTIONS (3)
  - Mobility decreased [Unknown]
  - Asthenia [Unknown]
  - Platelet count decreased [Unknown]
